FAERS Safety Report 5045411-9 (Version None)
Quarter: 2006Q3

REPORT INFORMATION
  Report Type: 
  Country: None (occurrence: None)
  Receive Date: 20060707
  Receipt Date: 20060627
  Transmission Date: 20061208
  Serious: Yes (Hospitalization, Disabling)
  Sender: FDA-Public Use
  Company Number: JP-MERCK-0606USA05694

PATIENT
  Age: 30 Year

DRUGS (6)
  1. SINGULAIR [Suspect]
     Route: 048
     Dates: start: 20050824, end: 20060301
  2. FLUTIDE [Concomitant]
     Route: 055
  3. MEPTIN [Concomitant]
     Route: 055
  4. UNIPHYL [Concomitant]
     Route: 048
  5. NOSCAPINE [Concomitant]
     Route: 048
     Dates: start: 20050926
  6. ONON [Concomitant]
     Route: 048
     Dates: start: 20050926

REACTIONS (2)
  - ANTINUCLEAR ANTIBODY INCREASED [None]
  - LIVER DISORDER [None]
